FAERS Safety Report 5063380-2 (Version None)
Quarter: 2006Q3

REPORT INFORMATION
  Report Type: 
  Country: None (occurrence: None)
  Receive Date: 20060724
  Receipt Date: 20060707
  Transmission Date: 20061208
  Serious: Yes (Disabling)
  Sender: FDA-Public Use
  Company Number: 227202

PATIENT
  Age: 77 Year
  Sex: Male
  Weight: 143.3 kg

DRUGS (6)
  1. RANIBIZUMAB(RANIBIZUMAB) PWDR + SOLVENT, INJECTION SOLN [Suspect]
     Indication: MACULAR DEGENERATION
     Dosage: 50 AUL, INTRAVITREAL
     Dates: start: 20060510
  2. ASPIRIN [Concomitant]
  3. ALENDRONIC ACID (ALENDRONIC ACID) [Concomitant]
  4. CLONAZEPAM [Concomitant]
  5. FERROUS SULFATE TAB [Concomitant]
  6. FUROSEMIDE [Concomitant]

REACTIONS (1)
  - RETINAL ARTERY SPASM [None]
